FAERS Safety Report 5658692-5 (Version None)
Quarter: 2008Q1

REPORT INFORMATION
  Report Type: 
  Country: None (occurrence: None)
  Receive Date: 20080310
  Receipt Date: 20070326
  Transmission Date: 20080703
  Serious: No
  Sender: FDA-Public Use
  Company Number: US-BAYER-200710933BCC

PATIENT
  Sex: Male
  Weight: 73 kg

DRUGS (3)
  1. ALEVE [Suspect]
     Indication: NEURALGIA
     Route: 048
  2. GLYBURIDE [Concomitant]
  3. CARDIZEM LA [Concomitant]

REACTIONS (4)
  - BURNING SENSATION [None]
  - HYPERSENSITIVITY [None]
  - PRURITUS GENERALISED [None]
  - TONGUE BLISTERING [None]
